FAERS Safety Report 5669573-5 (Version None)
Quarter: 2008Q1

REPORT INFORMATION
  Report Type: 
  Country: None (occurrence: None)
  Receive Date: 20080317
  Receipt Date: 20080303
  Transmission Date: 20080703
  Serious: Yes (Hospitalization)
  Sender: FDA-Public Use
  Company Number: BE-AMGEN-UK268823

PATIENT
  Sex: Male

DRUGS (9)
  1. KEPIVANCE [Suspect]
     Indication: MUCOSAL INFLAMMATION
     Route: 042
     Dates: start: 20071210, end: 20071222
  2. KEPIVANCE [Suspect]
     Route: 042
     Dates: start: 20071220, end: 20071222
  3. CARMUSTINE [Concomitant]
     Route: 042
     Dates: start: 20071213, end: 20071219
  4. ETOPOSIDE [Concomitant]
     Route: 042
     Dates: start: 20071213, end: 20071219
  5. CYTARABINE [Concomitant]
     Route: 042
     Dates: start: 20071213, end: 20071219
  6. MELPHALAN [Concomitant]
     Route: 042
     Dates: start: 20071213, end: 20071219
  7. ZOVIRAX [Concomitant]
     Route: 042
     Dates: start: 20071213
  8. DIFLUCAN [Concomitant]
     Route: 048
     Dates: start: 20071213
  9. COLIMYCINE [Concomitant]
     Route: 048
     Dates: start: 20071210, end: 20071220

REACTIONS (1)
  - DIARRHOEA [None]
